FAERS Safety Report 6739007-8 (Version None)
Quarter: 2010Q2

REPORT INFORMATION
  Report Type: 
  Country: None (occurrence: None)
  Receive Date: 20100524
  Receipt Date: 20100524
  Transmission Date: 20101027
  Serious: Yes (Hospitalization)
  Sender: FDA-Public Use
  Company Number: None

PATIENT
  Age: 82 Year
  Sex: Female
  Weight: 57.6068 kg

DRUGS (2)
  1. PLAVIX [Suspect]
  2. ASPIRIN [Concomitant]

REACTIONS (3)
  - ANAL HAEMORRHAGE [None]
  - COLITIS ISCHAEMIC [None]
  - SYNCOPE [None]
